FAERS Safety Report 9737441 (Version 2)
Quarter: 2013Q4

REPORT INFORMATION
  Report Type: Spontaneous
  Country: JP (occurrence: JP)
  Receive Date: 20131206
  Receipt Date: 20131218
  Transmission Date: 20140711
  Serious: Yes (Hospitalization, Other)
  Sender: FDA-Public Use
  Company Number: JP-009507513-1312JPN003109

PATIENT
  Age: 80 Year
  Sex: Female

DRUGS (2)
  1. JANUVIA TABLETS 25MG [Suspect]
     Indication: TYPE 2 DIABETES MELLITUS
     Route: 048
  2. GLYBURIDE [Concomitant]

REACTIONS (3)
  - Septic shock [Unknown]
  - Pyelonephritis [Unknown]
  - Infective spondylitis [Unknown]
